FAERS Safety Report 9445477 (Version 1)
Quarter: 2013Q3

REPORT INFORMATION
  Report Type: Spontaneous
  Country: IN (occurrence: None)
  Receive Date: 20130805
  Receipt Date: 20130805
  Transmission Date: 20140515
  Serious: Yes (Death, Other)
  Sender: FDA-Public Use
  Company Number: FK201302835

PATIENT
  Age: 12 Year
  Sex: Male

DRUGS (7)
  1. VALPROATE [Suspect]
     Indication: EPILEPSY
     Route: 048
  2. LAMOTRIGINE (LAMOTRIGINE) [Suspect]
     Indication: EPILEPSY
     Route: 048
  3. CLONAZEPAM (CLONAZEPAM) (CLONAZEPAM) [Concomitant]
  4. PARACETAMOL (PARACETAMOL) [Concomitant]
  5. PRIMAQUINE (PRIMAQUINE) [Concomitant]
  6. CHLOROQUINE (CHLOROQUINE) [Concomitant]
  7. CEFIXME+POTASSIUM CALVULANATE (CLAVULANATE POTASSIUM) [Concomitant]

REACTIONS (4)
  - Respiratory failure [None]
  - Toxic epidermal necrolysis [None]
  - Drug interaction [None]
  - Stevens-Johnson syndrome [None]
